FAERS Safety Report 6818575-1 (Version None)
Quarter: 2010Q3

REPORT INFORMATION
  Report Type: 
  Country: None (occurrence: None)
  Receive Date: 20100706
  Receipt Date: 20081208
  Transmission Date: 20110219
  Serious: Yes (Other)
  Sender: FDA-Public Use
  Company Number: US-PFIZER INC-2008089211

PATIENT
  Sex: Male
  Weight: 64.09 kg

DRUGS (4)
  1. ZITHROMAX [Suspect]
     Indication: UPPER RESPIRATORY TRACT INFECTION
     Dosage: 250 MG, 2X/DAY
     Route: 048
     Dates: start: 20081009, end: 20081013
  2. LASIX [Concomitant]
  3. POTASSIUM [Concomitant]
  4. DUONEB [Concomitant]

REACTIONS (1)
  - DEAFNESS [None]
